FAERS Safety Report 10082773 (Version 2)
Quarter: 2014Q2

REPORT INFORMATION
  Report Type: Spontaneous
  Country: US (occurrence: US)
  Receive Date: 20140416
  Receipt Date: 20140416
  Transmission Date: 20141212
  Serious: No
  Sender: FDA-Public Use
  Company Number: US-ALLERGAN-1307232US

PATIENT
  Sex: Female

DRUGS (5)
  1. ZYMAXID [Suspect]
     Indication: CONJUNCTIVITIS
     Dosage: UNK, QD
     Dates: start: 20130515
  2. ZYMAXID [Suspect]
     Dosage: 2 GTT, QD
     Route: 047
  3. ZYMAXID [Suspect]
     Dosage: 2 GTT, BID
     Route: 047
  4. ZYMAXID [Suspect]
     Dosage: 2 GTT, TID
     Route: 047
  5. ZYMAXID [Suspect]
     Dosage: 2 GTT, QID
     Route: 047
     Dates: start: 201302

REACTIONS (2)
  - Eye discharge [Recovered/Resolved]
  - Ocular hyperaemia [Recovering/Resolving]
